FAERS Safety Report 5335886-X (Version None)
Quarter: 2007Q1

REPORT INFORMATION
  Report Type: 
  Country: None (occurrence: None)
  Receive Date: 20070301
  Receipt Date: 20060912
  Transmission Date: 20070707
  Serious: Yes (Other)
  Sender: FDA-Public Use
  Company Number: 229801

PATIENT
  Age: 14 Year
  Sex: Female
  Weight: 31 kg

DRUGS (5)
  1. NUTROPIN AQ [Suspect]
     Indication: GROWTH HORMONE DEFICIENCY
     Dosage: 1.6 MG, 6/WEEK, SUBCUTANEOUS
     Route: 058
     Dates: start: 20040608, end: 20060908
  2. COUMADIN [Concomitant]
  3. FOLIC ACID [Concomitant]
  4. METHOTREXATE [Concomitant]
  5. SULFASALAZINE [Concomitant]

REACTIONS (1)
  - SCOLIOSIS [None]
